FAERS Safety Report 7341639-3 (Version None)
Quarter: 2011Q1

REPORT INFORMATION
  Report Type: 
  Country: None (occurrence: None)
  Receive Date: 20110309
  Receipt Date: 20110307
  Transmission Date: 20110831
  Serious: Yes (Other)
  Sender: FDA-Public Use
  Company Number: US-PFIZER INC-2006092034

PATIENT
  Sex: Female
  Weight: 73 kg

DRUGS (7)
  1. WELLBUTRIN [Concomitant]
     Indication: DEPRESSION
     Dosage: UNK
     Route: 065
  2. CHANTIX [Suspect]
     Dosage: UNK
     Route: 048
     Dates: start: 20070101, end: 20070101
  3. SYNTHROID [Concomitant]
     Indication: HYPOTHYROIDISM
     Dosage: UNK
  4. CHANTIX [Suspect]
     Indication: SMOKING CESSATION THERAPY
     Dosage: 0.5 MG, 1X/DAY
     Route: 048
     Dates: start: 20060721
  5. CHANTIX [Suspect]
     Dosage: UNK
     Route: 048
     Dates: start: 20100924, end: 20100101
  6. REMERON [Concomitant]
     Indication: DEPRESSION
     Dosage: UNK
  7. CHANTIX [Suspect]
     Dosage: 0.5 MG, 1X/DAY
     Route: 048
     Dates: start: 20101125

REACTIONS (13)
  - CARDIAC DISORDER [None]
  - CHEST DISCOMFORT [None]
  - COLITIS [None]
  - FEAR [None]
  - FATIGUE [None]
  - ANXIETY [None]
  - MACULAR HOLE [None]
  - IRRITABILITY [None]
  - DYSPNOEA [None]
  - NERVOUSNESS [None]
  - FEELING ABNORMAL [None]
  - ABNORMAL DREAMS [None]
  - DIARRHOEA [None]
